FAERS Safety Report 15531141 (Version 1)
Quarter: 2018Q4

REPORT INFORMATION
  Report Type: Spontaneous
  Country: US (occurrence: US)
  Receive Date: 20181019
  Receipt Date: 20181019
  Transmission Date: 20190205
  Serious: Yes (Death)
  Sender: FDA-Public Use
  Company Number: US-ROCHE-2200532

PATIENT
  Age: 49 Year
  Sex: Female

DRUGS (1)
  1. AVASTIN [Suspect]
     Active Substance: BEVACIZUMAB
     Indication: ASCITES
     Dosage: INJECTION 400MG 16ML SDV
     Route: 042

REACTIONS (3)
  - Off label use [Unknown]
  - Respiratory distress [Fatal]
  - Intentional product use issue [Unknown]

NARRATIVE: CASE EVENT DATE: 20181015
